FAERS Safety Report 7648841-1 (Version None)
Quarter: 2011Q3

REPORT INFORMATION
  Report Type: 
  Country: None (occurrence: None)
  Receive Date: 20110801
  Receipt Date: 20110722
  Transmission Date: 20111222
  Serious: Yes (Hospitalization)
  Sender: FDA-Public Use
  Company Number: PHHY2011SG68473

PATIENT
  Age: 47 Year
  Sex: Female

DRUGS (4)
  1. PREDNISOLONE [Suspect]
     Dosage: 14 MG, UNK
  2. PREDNISOLONE [Suspect]
     Dosage: 10 MG, UNK
     Dates: start: 20070701
  3. CALCIUM ACETATE [Concomitant]
  4. ALENDRONATE SODIUM [Concomitant]
     Dosage: UNK

REACTIONS (8)
  - SKIN NECROSIS [None]
  - CHEILITIS [None]
  - RASH [None]
  - CHILLS [None]
  - CONJUNCTIVITIS [None]
  - ORAL MUCOSA EROSION [None]
  - SYSTEMIC LUPUS ERYTHEMATOSUS [None]
  - PYREXIA [None]
